FAERS Safety Report 8076052-7 (Version None)
Quarter: 2012Q1

REPORT INFORMATION
  Report Type: 
  Country: None (occurrence: None)
  Receive Date: 20120127
  Receipt Date: 20110527
  Transmission Date: 20120608
  Serious: No
  Sender: FDA-Public Use
  Company Number: US-GLAXOSMITHKLINE-A0931494A

PATIENT
  Sex: Male

DRUGS (1)
  1. WELLBUTRIN XL [Suspect]
     Route: 065

REACTIONS (1)
  - DRUG HYPERSENSITIVITY [None]
